FAERS Safety Report 7024633-1 (Version None)
Quarter: 2010Q4

REPORT INFORMATION
  Report Type: 
  Country: None (occurrence: None)
  Receive Date: 20101001
  Receipt Date: 20100924
  Transmission Date: 20110411
  Serious: Yes (Hospitalization)
  Sender: FDA-Public Use
  Company Number: US-JNJFOC-20100607872

PATIENT
  Sex: Female
  Weight: 96.16 kg

DRUGS (2)
  1. MOTRIN IB [Suspect]
     Route: 048
  2. MOTRIN IB [Suspect]
     Indication: PRODUCT USED FOR UNKNOWN INDICATION
     Route: 048

REACTIONS (2)
  - ALVEOLITIS ALLERGIC [None]
  - PRODUCT QUALITY ISSUE [None]
